FAERS Safety Report 6808475-5 (Version None)
Quarter: 2010Q2

REPORT INFORMATION
  Report Type: 
  Country: None (occurrence: None)
  Receive Date: 20100629
  Receipt Date: 20090613
  Transmission Date: 20101027
  Serious: No
  Sender: FDA-Public Use
  Company Number: US-PFIZER INC-2009229399

PATIENT
  Sex: Male
  Weight: 95.3 kg

DRUGS (3)
  1. VIAGRA [Suspect]
     Indication: LOSS OF LIBIDO
     Dosage: 100 MG, UNK
     Route: 048
     Dates: start: 20070101
  2. LISINOPRIL [Concomitant]
     Indication: HYPERTENSION
     Dosage: UNK
     Route: 048
  3. LEVOTHYROXINE SODIUM [Concomitant]
     Indication: THYROID DISORDER
     Dosage: UNK
     Route: 048

REACTIONS (2)
  - DYSPEPSIA [None]
  - ERUCTATION [None]
